FAERS Safety Report 12340772 (Version 1)
Quarter: 2016Q2

REPORT INFORMATION
  Report Type: Spontaneous
  Country: HU (occurrence: HU)
  Receive Date: 20160506
  Receipt Date: 20160506
  Transmission Date: 20160815
  Serious: Yes (Life-Threatening)
  Sender: FDA-Public Use
  Company Number: HU-WATSON-2016-09300

PATIENT
  Age: 65 Year
  Sex: Female

DRUGS (1)
  1. BOPACATIN [Suspect]
     Active Substance: CARBOPLATIN
     Indication: OVARIAN CANCER
     Dosage: UNK UNK, UNKNOWN (INTENDED DOSE 500MG)
     Route: 042
     Dates: start: 20160406, end: 20160406

REACTIONS (1)
  - Anaphylactic shock [Recovered/Resolved]

NARRATIVE: CASE EVENT DATE: 20160406
